FAERS Safety Report 17440041 (Version 5)
Quarter: 2021Q3

REPORT INFORMATION
  Report Type: Spontaneous
  Country: US (occurrence: US)
  Receive Date: 20200220
  Receipt Date: 20210823
  Transmission Date: 20211014
  Serious: No
  Sender: FDA-Public Use
  Company Number: US-PFIZER INC-2020060701

PATIENT
  Age: 79 Year
  Sex: Female
  Weight: 55.79 kg

DRUGS (5)
  1. VITAMIN D [COLECALCIFEROL] [Concomitant]
     Active Substance: CHOLECALCIFEROL
     Dosage: 350 MG, DAILY
  2. IBRANCE [Suspect]
     Active Substance: PALBOCICLIB
     Indication: BREAST CANCER FEMALE
     Dosage: 125 MG, CYCLIC (IN THE MORNING FOR 3 WEEKS ON AND 1 WEEK OFF)
     Dates: start: 201901
  3. IBRANCE [Suspect]
     Active Substance: PALBOCICLIB
     Dosage: 75 MG, CYCLIC [ONCE DAILY IN THE MORNING FOR 3 WEEKS ON AND 1 WEEK OFF ]
  4. OMEGA 3 [FISH OIL] [Concomitant]
     Active Substance: FISH OIL
     Dosage: 500 MG, DAILY
  5. ANASTROZOLE. [Concomitant]
     Active Substance: ANASTROZOLE
     Indication: BREAST CANCER FEMALE
     Dosage: 1 MG, DAILY

REACTIONS (2)
  - Lacrimation increased [Recovering/Resolving]
  - Eye pain [Recovering/Resolving]
